FAERS Safety Report 23789939 (Version 2)
Quarter: 2025Q3

REPORT INFORMATION
  Report Type: Spontaneous
  Country: US (occurrence: US)
  Receive Date: 20240426
  Receipt Date: 20250730
  Transmission Date: 20251021
  Serious: Yes (Other)
  Sender: BAUSCH AND LOMB
  Company Number: US-MLMSERVICE-20240412-PI025797-00097-1

PATIENT
  Age: 75 Year
  Sex: Female

DRUGS (3)
  1. LOTEPREDNOL [Suspect]
     Active Substance: LOTEPREDNOL
     Indication: Dry eye
     Route: 061
  2. CYCLOSPORINE [Suspect]
     Active Substance: CYCLOSPORINE
     Indication: Dry eye
     Route: 061
  3. LATANOPROST [Concomitant]
     Active Substance: LATANOPROST
     Indication: Uveitic glaucoma

REACTIONS (1)
  - Kaposi^s sarcoma classical type [Recovering/Resolving]
